FAERS Safety Report 8160621-X (Version None)
Quarter: 2012Q1

REPORT INFORMATION
  Report Type: 
  Country: None (occurrence: None)
  Receive Date: 20120223
  Receipt Date: 20120208
  Transmission Date: 20120608
  Serious: Yes (Other)
  Sender: FDA-Public Use
  Company Number: GB-ROCHE-1038581

PATIENT
  Age: 53 Year
  Sex: Female

DRUGS (1)
  1. TAMIFLU [Suspect]
     Indication: PRODUCT USED FOR UNKNOWN INDICATION

REACTIONS (11)
  - HYPOTHYROIDISM [None]
  - CHOKING [None]
  - PRURITUS [None]
  - FATIGUE [None]
  - FIBROMYALGIA [None]
  - INFLAMMATION [None]
  - FORMICATION [None]
  - CONDITION AGGRAVATED [None]
  - INSOMNIA [None]
  - ASTHENIA [None]
  - ASTHMA [None]
